FAERS Safety Report 11564511 (Version 1)
Quarter: 2015Q3

REPORT INFORMATION
  Report Type: Spontaneous
  Country: US (occurrence: US)
  Receive Date: 20150916
  Receipt Date: 20150916
  Transmission Date: 20151125
  Serious: No
  Sender: FDA-Public Use
  Company Number: US-ELI_LILLY_AND_COMPANY-US200903003878

PATIENT
  Age: 73 Year
  Sex: Female

DRUGS (12)
  1. FORTEO [Suspect]
     Active Substance: TERIPARATIDE
     Indication: OSTEOPOROSIS
     Dosage: 20 UG, DAILY (1/D)
     Dates: start: 20081118, end: 20090314
  2. CENTRUM SILVER [Concomitant]
     Active Substance: VITAMINS
     Dosage: UNK, DAILY (1/D)
  3. OSCAL 500-D [Concomitant]
     Dosage: 500 MG, DAILY (1/D)
  4. CALTRATE WITH VITAMIN D [Concomitant]
     Active Substance: CALCIUM CARBONATE\CHOLECALCIFEROL
     Dosage: 600 MG, DAILY (1/D)
  5. CARDIZEM CD [Concomitant]
     Active Substance: DILTIAZEM HYDROCHLORIDE
     Dosage: 120 MG, 2/D
  6. COREG [Concomitant]
     Active Substance: CARVEDILOL
     Dosage: 3.125 TWO TABLETS
  7. PREMARIN [Concomitant]
     Active Substance: ESTROGENS, CONJUGATED
     Dosage: 0.5 G, UNK
     Route: 067
     Dates: end: 200903
  8. CARVEDILOL. [Concomitant]
     Active Substance: CARVEDILOL
  9. DETROL [Concomitant]
     Active Substance: TOLTERODINE TARTRATE
     Dosage: 4 MG, DAILY (1/D)
  10. LIPITOR [Concomitant]
     Active Substance: ATORVASTATIN CALCIUM
     Dosage: 40 MG, DAILY (1/D)
  11. ASPIRIN. [Concomitant]
     Active Substance: ASPIRIN
     Dosage: 81 MG, DAILY (1/D)
  12. PRINIVIL /00894001/ [Concomitant]

REACTIONS (5)
  - Bone pain [Recovered/Resolved]
  - Myositis [Recovered/Resolved]
  - Hypertension [Recovered/Resolved]
  - Flushing [Recovered/Resolved]
  - Feeling hot [Recovered/Resolved]

NARRATIVE: CASE EVENT DATE: 200812
